FAERS Safety Report 16312632 (Version 1)
Quarter: 2019Q2

REPORT INFORMATION
  Report Type: Spontaneous
  Country: CN (occurrence: CN)
  Receive Date: 20190515
  Receipt Date: 20190515
  Transmission Date: 20190711
  Serious: Yes (Hospitalization)
  Sender: FDA-Public Use
  Company Number: CN-ASTRAZENECA-2019SE71784

PATIENT
  Sex: Male
  Weight: 11.6 kg

DRUGS (3)
  1. BRICANYL [Concomitant]
     Active Substance: TERBUTALINE SULFATE
  2. SODIUM CHLORIDE. [Concomitant]
     Active Substance: SODIUM CHLORIDE
  3. PULMICORT RESPULES [Suspect]
     Active Substance: BUDESONIDE
     Route: 055
     Dates: start: 20190502, end: 20190502

REACTIONS (1)
  - Aphthous ulcer [Unknown]
